FAERS Safety Report 7025173-6 (Version None)
Quarter: 2010Q4

REPORT INFORMATION
  Report Type: 
  Country: None (occurrence: None)
  Receive Date: 20101001
  Receipt Date: 20100922
  Transmission Date: 20110411
  Serious: Yes (Hospitalization, Other)
  Sender: FDA-Public Use
  Company Number: US-ROCHE-714521

PATIENT
  Sex: Male
  Weight: 81.6 kg

DRUGS (1)
  1. ACCUTANE [Suspect]
     Route: 065
     Dates: start: 20020913, end: 20030201

REACTIONS (8)
  - ANAL ABSCESS [None]
  - ANAL FISSURE [None]
  - ANAL FISTULA [None]
  - CROHN'S DISEASE [None]
  - INFLAMMATORY BOWEL DISEASE [None]
  - PERSONALITY CHANGE [None]
  - SLEEP DISORDER [None]
  - WEIGHT DECREASED [None]
